FAERS Safety Report 14803212 (Version 2)
Quarter: 2018Q2

REPORT INFORMATION
  Report Type: Report from Study
  Country: BR (occurrence: BR)
  Receive Date: 20180425
  Receipt Date: 20180426
  Transmission Date: 20180711
  Serious: Yes (Life-Threatening, Hospitalization, Other)
  Sender: FDA-Public Use
  Company Number: BR-UCBSA-2018017473

PATIENT
  Sex: Female

DRUGS (1)
  1. LACOSAMIDE. [Suspect]
     Active Substance: LACOSAMIDE
     Indication: PRODUCT USED FOR UNKNOWN INDICATION
     Dosage: 100 MG, ONCE DAILY (QD)
     Route: 048

REACTIONS (6)
  - Hypertension [Unknown]
  - Autonomic neuropathy [Unknown]
  - Pneumonia [Unknown]
  - Temporal lobe epilepsy [Unknown]
  - Cardio-respiratory arrest [Unknown]
  - Off label use [Unknown]
